FAERS Safety Report 5842948-7 (Version None)
Quarter: 2008Q3

REPORT INFORMATION
  Report Type: 
  Country: None (occurrence: None)
  Receive Date: 20080811
  Receipt Date: 20080728
  Transmission Date: 20090109
  Serious: Yes (Life-Threatening)
  Sender: FDA-Public Use
  Company Number: POMP-1000238

PATIENT
  Sex: Male
  Weight: 14 kg

DRUGS (8)
  1. MYOZYME [Suspect]
     Indication: GLYCOGEN STORAGE DISEASE TYPE II
     Dosage: 300 MG, Q2W, INTRAVENOUS
     Route: 042
     Dates: start: 20071205
  2. SOLU-CORTEF [Concomitant]
  3. ATARAX [Concomitant]
  4. ENALAPRIL MALEATE [Concomitant]
  5. ANTIBIOTICS-RESISTANT LACTIC ACID BACTERIAE [Concomitant]
  6. FUROSEMIDE (FUROSEMIDE) [Concomitant]
  7. ASPIRIN (SALICYLAMIDE) [Concomitant]
  8. SODIUM PICOSTULFATE (SODIUM PICOSULFATE) [Concomitant]

REACTIONS (3)
  - ERYTHEMA [None]
  - OXYGEN SATURATION DECREASED [None]
  - RASH [None]
